FAERS Safety Report 16200077 (Version 1)
Quarter: 2019Q2

REPORT INFORMATION
  Report Type: Spontaneous
  Country: US (occurrence: US)
  Receive Date: 20190415
  Receipt Date: 20190415
  Transmission Date: 20190711
  Serious: No
  Sender: FDA-Public Use
  Company Number: US-SA-2019SA100708

PATIENT
  Age: 12 Year
  Sex: Female

DRUGS (1)
  1. LOVENOX [Suspect]
     Active Substance: ENOXAPARIN SODIUM
     Indication: NEPHROTIC SYNDROME
     Dosage: 15 MG, Q12H
     Route: 065
     Dates: start: 20190325

REACTIONS (1)
  - Incorrect dose administered [Unknown]
